FAERS Safety Report 5925520-X (Version None)
Quarter: 2008Q4

REPORT INFORMATION
  Report Type: 
  Country: None (occurrence: None)
  Receive Date: 20081021
  Receipt Date: 20081013
  Transmission Date: 20090506
  Serious: Yes (Other)
  Sender: FDA-Public Use
  Company Number: PHHY2008DE24850

PATIENT
  Age: 60 Year
  Sex: Female

DRUGS (1)
  1. MYFORTIC [Suspect]
     Indication: UVEITIS
     Dosage: 1 DF, BID
     Route: 048
     Dates: start: 20080101, end: 20080101

REACTIONS (2)
  - HYPERTENSION [None]
  - TINNITUS [None]
